FAERS Safety Report 9368911 (Version 6)
Quarter: 2014Q3

REPORT INFORMATION
  Report Type: Report from Study
  Country: IT (occurrence: IT)
  Receive Date: 20130626
  Receipt Date: 20140721
  Transmission Date: 20150326
  Serious: Yes (Other)
  Sender: FDA-Public Use
  Company Number: IT-ROCHE-1237734

PATIENT
  Age: 80 Year
  Sex: Male
  Weight: 76 kg

DRUGS (9)
  1. ZELBORAF [Suspect]
     Active Substance: VEMURAFENIB
     Route: 048
     Dates: start: 201206, end: 201207
  2. LANOXIN [Concomitant]
     Active Substance: DIGOXIN
     Indication: HYPERTENSION
  3. ZELBORAF [Suspect]
     Active Substance: VEMURAFENIB
     Route: 048
     Dates: start: 201208
  4. DOXAZOSIN [Concomitant]
     Active Substance: DOXAZOSIN\DOXAZOSIN MESYLATE
     Indication: HYPERTENSION
  5. OMNIC [Concomitant]
     Active Substance: TAMSULOSIN HYDROCHLORIDE
     Indication: BENIGN PROSTATIC HYPERPLASIA
  6. CARDIOASPIRINA [Concomitant]
     Active Substance: ASPIRIN
     Indication: BENIGN PROSTATIC HYPERPLASIA
  7. ZELBORAF [Suspect]
     Active Substance: VEMURAFENIB
     Indication: METASTATIC MALIGNANT MELANOMA
     Route: 048
     Dates: start: 20120801, end: 20130719
  8. LOSARTAN/HCTZ [Concomitant]
     Active Substance: HYDROCHLOROTHIAZIDE\LOSARTAN
     Indication: HYPERTENSION
  9. OMNIC [Concomitant]
     Active Substance: TAMSULOSIN HYDROCHLORIDE
     Indication: HYPERTENSION

REACTIONS (7)
  - Hepatotoxicity [Unknown]
  - Skin lesion [Unknown]
  - Neoplasm [Unknown]
  - Hyperbilirubinaemia [Unknown]
  - Keratoacanthoma [Unknown]
  - Skin toxicity [Unknown]
  - Electrocardiogram QT prolonged [Recovered/Resolved]

NARRATIVE: CASE EVENT DATE: 20120801
